FAERS Safety Report 9291737 (Version 1)
Quarter: 2013Q2

REPORT INFORMATION
  Report Type: Spontaneous
  Country: US (occurrence: US)
  Receive Date: 20130516
  Receipt Date: 20130516
  Transmission Date: 20140414
  Serious: No
  Sender: FDA-Public Use
  Company Number: US-009507513-1305USA007452

PATIENT
  Age: 40 Year
  Sex: Male

DRUGS (2)
  1. SAPHRIS [Suspect]
     Indication: BIPOLAR I DISORDER
     Dosage: 5 MG, BID
     Route: 060
  2. SAPHRIS [Suspect]
     Dosage: 10 MG, QD, IN THE MORNING
     Route: 060

REACTIONS (2)
  - Restlessness [Unknown]
  - Insomnia [Unknown]
